FAERS Safety Report 18980791 (Version 4)
Quarter: 2022Q3

REPORT INFORMATION
  Report Type: Spontaneous
  Country: JP (occurrence: JP)
  Receive Date: 20210308
  Receipt Date: 20220805
  Transmission Date: 20221027
  Serious: Yes (Other)
  Sender: FDA-Public Use
  Company Number: JP-NIPPON SHINYAKU-NIP-2021-000005

PATIENT

DRUGS (1)
  1. VILTEPSO [Suspect]
     Active Substance: VILTOLARSEN
     Indication: Duchenne muscular dystrophy
     Dosage: 80 MG/KG, QWK
     Route: 041
     Dates: start: 20201006

REACTIONS (3)
  - Fracture [Recovered/Resolved]
  - Hot flush [Unknown]
  - Thirst [Unknown]

NARRATIVE: CASE EVENT DATE: 20201217
